FAERS Safety Report 9338326 (Version 1)
Quarter: 2013Q2

REPORT INFORMATION
  Report Type: Spontaneous
  Country: US (occurrence: US)
  Receive Date: 20130610
  Receipt Date: 20130610
  Transmission Date: 20140414
  Serious: No
  Sender: FDA-Public Use
  Company Number: US-PFIZER INC-2013172293

PATIENT
  Age: 53 Year
  Sex: Female

DRUGS (7)
  1. LOPID [Suspect]
     Dosage: UNK
  2. METFORMIN HCL [Suspect]
     Dosage: UNK
  3. FOLIC ACID [Suspect]
     Dosage: UNK
  4. LANTUS [Suspect]
     Dosage: UNK
  5. ZOCOR [Suspect]
     Dosage: UNK
  6. ULTRACET [Suspect]
     Dosage: UNK
  7. APIDRA [Suspect]
     Dosage: UNK

REACTIONS (1)
  - Drug hypersensitivity [Unknown]
